FAERS Safety Report 5763425-8 (Version None)
Quarter: 2008Q2

REPORT INFORMATION
  Report Type: 
  Country: None (occurrence: None)
  Receive Date: 20080604
  Receipt Date: 20080604
  Transmission Date: 20081010
  Serious: No
  Sender: FDA-Public Use
  Company Number: None

PATIENT
  Sex: Female
  Weight: 90.7194 kg

DRUGS (3)
  1. PROAIR HFA [Suspect]
     Indication: ASTHMA
     Dosage: 2 INHALATIONS AS NEEDED INHAL
     Route: 055
     Dates: start: 20070111, end: 20080523
  2. PROAIR HFA [Suspect]
     Indication: MULTIPLE ALLERGIES
     Dosage: 2 INHALATIONS AS NEEDED INHAL
     Route: 055
     Dates: start: 20070111, end: 20080523
  3. ALBUTEROL SULFATE AUTOHALER [Suspect]

REACTIONS (4)
  - DRUG INEFFECTIVE [None]
  - MIDDLE INSOMNIA [None]
  - PHARMACEUTICAL PRODUCT COMPLAINT [None]
  - TINNITUS [None]
